FAERS Safety Report 15494088 (Version 1)
Quarter: 2018Q4

REPORT INFORMATION
  Report Type: Spontaneous
  Country: US (occurrence: US)
  Receive Date: 20181012
  Receipt Date: 20181012
  Transmission Date: 20190205
  Serious: No
  Sender: FDA-Public Use
  Company Number: US-INCYTE CORPORATION-2018IN010050

PATIENT

DRUGS (1)
  1. JAKAFI [Suspect]
     Active Substance: RUXOLITINIB
     Dosage: UNK, BID
     Route: 048
     Dates: start: 201808, end: 2018

REACTIONS (2)
  - Petechiae [Unknown]
  - Lip swelling [Unknown]
